FAERS Safety Report 9196104 (Version 1)
Quarter: 2013Q1

REPORT INFORMATION
  Report Type: Spontaneous
  Country: FI (occurrence: FI)
  Receive Date: 20130328
  Receipt Date: 20130328
  Transmission Date: 20140127
  Serious: Yes (Hospitalization)
  Sender: FDA-Public Use
  Company Number: FI-ACCORD-016945

PATIENT
  Age: 69 Year
  Sex: Female

DRUGS (12)
  1. LETROZOLE [Suspect]
     Indication: ADJUVANT THERAPY
     Dosage: 1 TABLET PER DAY
     Dates: start: 20121114, end: 20121223
  2. PRIMASPAN [Concomitant]
     Dosage: AS NEEDED IN MORNING
  3. ONDANSETRON [Concomitant]
     Indication: NAUSEA
     Dates: start: 20121104, end: 20121127
  4. MICARDIS PLUS [Concomitant]
     Indication: BLOOD PRESSURE
     Dosage: 80 MG/25 MG
     Dates: start: 20090301
  5. ORAMET [Concomitant]
     Indication: TYPE 2 DIABETES MELLITUS
     Dosage: ONE IN MORNING AND ONE IN EVENING
     Dates: start: 20100601
  6. IMOVANE [Concomitant]
     Indication: INSOMNIA
     Dosage: AS NEEDED
  7. SOMAC [Concomitant]
     Dosage: AS NEEDED
     Dates: start: 20121114
  8. CALCICHEW-D3 FORTE [Concomitant]
     Dosage: 1 TABLET IN MORNING
     Dates: start: 20080301
  9. PANADOL [Concomitant]
     Indication: PAIN
     Dosage: AS NEEDED
  10. ROSUVASTATIN [Concomitant]
     Indication: LIPID METABOLISM DISORDER
     Dosage: 2 TABLETS IN EVENING
     Dates: start: 20100901
  11. PLENDIL [Concomitant]
     Dosage: ONCE IN EVENING
     Dates: start: 20100601
  12. EMCONCOR CHF [Concomitant]
     Indication: VENTRICULAR EXTRASYSTOLES
     Dates: start: 20100501

REACTIONS (6)
  - Tremor [Not Recovered/Not Resolved]
  - Heart rate increased [Not Recovered/Not Resolved]
  - Blood pressure increased [Not Recovered/Not Resolved]
  - Hypoaesthesia [Not Recovered/Not Resolved]
  - Asthenia [Not Recovered/Not Resolved]
  - Nausea [Not Recovered/Not Resolved]
